FAERS Safety Report 5611452-3 (Version None)
Quarter: 2008Q1

REPORT INFORMATION
  Report Type: 
  Country: None (occurrence: None)
  Receive Date: 20080201
  Receipt Date: 20080122
  Transmission Date: 20080703
  Serious: Yes (Hospitalization)
  Sender: FDA-Public Use
  Company Number: US-ELI_LILLY_AND_COMPANY-US200801004709

PATIENT
  Sex: Male

DRUGS (9)
  1. HUMULIN N [Suspect]
  2. HUMULIN N [Suspect]
  3. HUMULIN R [Suspect]
  4. PROBIOTICA [Concomitant]
  5. MAGNESIUM [Concomitant]
  6. FOLIC ACID W/VITAMIN B12 [Concomitant]
  7. ASCORBIC ACID [Concomitant]
  8. PERPHENAN [Concomitant]
  9. AMITRIP [Concomitant]

REACTIONS (10)
  - ANOREXIA [None]
  - ANXIETY [None]
  - DEHYDRATION [None]
  - DYSPNOEA [None]
  - GASTROINTESTINAL CANDIDIASIS [None]
  - NASAL CANDIDIASIS [None]
  - NAUSEA [None]
  - OESOPHAGEAL OPERATION [None]
  - ORAL CANDIDIASIS [None]
  - VOMITING [None]
